FAERS Safety Report 6040071-2 (Version None)
Quarter: 2009Q1

REPORT INFORMATION
  Report Type: 
  Country: None (occurrence: None)
  Receive Date: 20090116
  Receipt Date: 20071204
  Transmission Date: 20090719
  Serious: No
  Sender: FDA-Public Use
  Company Number: US-BRISTOL-MYERS SQUIBB COMPANY-14004691

PATIENT
  Age: 27 Year
  Sex: Male
  Weight: 68 kg

DRUGS (3)
  1. ABILIFY [Suspect]
     Indication: SCHIZOPHRENIA
     Dates: start: 20050401
  2. TAGAMET [Concomitant]
  3. ALLEGRA [Concomitant]

REACTIONS (2)
  - ANXIETY [None]
  - DISTURBANCE IN ATTENTION [None]
